FAERS Safety Report 10598160 (Version 2)
Quarter: 2014Q4

REPORT INFORMATION
  Report Type: Report from Study
  Country: FR (occurrence: FR)
  Receive Date: 20141121
  Receipt Date: 20141121
  Transmission Date: 20150529
  Serious: Yes (Hospitalization, Other)
  Sender: FDA-Public Use
  Company Number: FR-BAYER-2013-047860

PATIENT
  Age: 41 Year
  Sex: Female

DRUGS (2)
  1. REGORAFENIB [Suspect]
     Active Substance: REGORAFENIB
     Dosage: UNK
  2. REGORAFENIB [Suspect]
     Active Substance: REGORAFENIB
     Dosage: UNK

REACTIONS (9)
  - Rhinorrhoea [Recovered/Resolved]
  - Asthenia [None]
  - Asthenia [Recovered/Resolved]
  - Pancreatitis acute [Recovered/Resolved]
  - Mucosal inflammation [Recovered/Resolved]
  - Cough [Recovered/Resolved]
  - Pneumothorax [Recovered/Resolved]
  - Pyrexia [Recovered/Resolved]
  - Pancreatitis [Recovering/Resolving]

NARRATIVE: CASE EVENT DATE: 201303
